FAERS Safety Report 4578102-9 (Version None)
Quarter: 2005Q1

REPORT INFORMATION
  Report Type: 
  Country: None (occurrence: None)
  Receive Date: 20050202
  Receipt Date: 20050202
  Transmission Date: 20050727
  Serious: Yes (Other)
  Sender: FDA-Public Use
  Company Number: None

PATIENT
  Age: 62 Year
  Sex: Male

DRUGS (1)
  1. ZOCOR [Suspect]
     Dosage: 20 MG PO HS
     Route: 048
     Dates: start: 20030707, end: 20040601

REACTIONS (2)
  - FATIGUE [None]
  - GASTROINTESTINAL DISORDER [None]
